FAERS Safety Report 11500278 (Version 1)
Quarter: 2015Q3

REPORT INFORMATION
  Report Type: Spontaneous
  Country: US (occurrence: None)
  Receive Date: 20150910
  Receipt Date: 20150910
  Transmission Date: 20151125
  Serious: No
  Sender: FDA-Public Use
  Company Number: SOM-4263-AE

PATIENT
  Age: 70 Year
  Sex: Female

DRUGS (5)
  1. TAMOXIFEN [Concomitant]
     Active Substance: TAMOXIFEN
  2. NEURONTIN [Concomitant]
     Active Substance: GABAPENTIN
  3. OXYCODONE [Concomitant]
     Active Substance: OXYCODONE
  4. SF 5000 PLUS [Suspect]
     Active Substance: SODIUM FLUORIDE
     Indication: DENTAL FLUORIDE THERAPY
     Dosage: TOPICAL ON TEETH
     Route: 061
  5. ENALAPRIL [Concomitant]
     Active Substance: ENALAPRIL

REACTIONS (4)
  - Rash morbilliform [None]
  - Rash generalised [None]
  - Oral discomfort [None]
  - Swollen tongue [None]

NARRATIVE: CASE EVENT DATE: 20150903
